FAERS Safety Report 25967862 (Version 2)
Quarter: 2025Q4

REPORT INFORMATION
  Report Type: Spontaneous
  Country: US (occurrence: US)
  Receive Date: 20251028
  Receipt Date: 20251126
  Transmission Date: 20260117
  Serious: Yes (Hospitalization)
  Sender: DAIICHI
  Company Number: US-DSJP-DS-2025-171697-US

PATIENT
  Sex: Male

DRUGS (1)
  1. VANFLYTA [Suspect]
     Active Substance: QUIZARTINIB DIHYDROCHLORIDE
     Indication: Plasma cell myeloma
     Dosage: 17.7 MG (1 TABLET)
     Route: 048
     Dates: end: 20251107

REACTIONS (2)
  - Device related infection [Recovering/Resolving]
  - White blood cell count decreased [Recovering/Resolving]
